FAERS Safety Report 7424633-3 (Version None)
Quarter: 2011Q2

REPORT INFORMATION
  Report Type: 
  Country: None (occurrence: None)
  Receive Date: 20110419
  Receipt Date: 20110413
  Transmission Date: 20111010
  Serious: Yes (Other)
  Sender: FDA-Public Use
  Company Number: GB-SANOFI-AVENTIS-2011SA023002

PATIENT
  Sex: Male

DRUGS (2)
  1. HUMALOG [Concomitant]
  2. LANTUS [Suspect]

REACTIONS (1)
  - DEEP VEIN THROMBOSIS [None]
